FAERS Safety Report 9368969 (Version 1)
Quarter: 2013Q2

REPORT INFORMATION
  Report Type: Spontaneous
  Country: US (occurrence: US)
  Receive Date: 20130626
  Receipt Date: 20130626
  Transmission Date: 20140414
  Serious: Yes (Other)
  Sender: FDA-Public Use
  Company Number: PHEH2013US013417

PATIENT
  Sex: Female

DRUGS (6)
  1. RECLAST [Suspect]
     Indication: OSTEOPOROSIS
     Dates: start: 2010
  2. RECLAST [Suspect]
     Indication: OSTEOPENIA
  3. FOSAMAX [Suspect]
     Indication: OSTEOPOROSIS
  4. FOSAMAX [Suspect]
     Indication: OSTEOPENIA
  5. ACTONEL [Suspect]
     Indication: OSTEOPOROSIS
  6. ACTONEL [Suspect]
     Indication: OSTEOPENIA

REACTIONS (15)
  - Bone disorder [Unknown]
  - Fracture [Unknown]
  - Osteogenesis imperfecta [Unknown]
  - Multiple fractures [Unknown]
  - Femur fracture [Unknown]
  - Low turnover osteopathy [Unknown]
  - Hip fracture [Unknown]
  - Concomitant disease aggravated [Unknown]
  - Deformity [Unknown]
  - Stress fracture [Unknown]
  - Injury [Unknown]
  - Anhedonia [Unknown]
  - Emotional distress [Unknown]
  - Anxiety [Unknown]
  - Pain [Unknown]
